APPROVED DRUG PRODUCT: CALCIPOTRIENE AND BETAMETHASONE DIPROPIONATE
Active Ingredient: BETAMETHASONE DIPROPIONATE; CALCIPOTRIENE
Strength: 0.064%;0.005%
Dosage Form/Route: SUSPENSION;TOPICAL
Application: A213269 | Product #001 | TE Code: AB
Applicant: SUN PHARMA CANADA INC
Approved: Sep 2, 2020 | RLD: No | RS: No | Type: RX